FAERS Safety Report 14358605 (Version 4)
Quarter: 2020Q3

REPORT INFORMATION
  Report Type: Spontaneous
  Country: US (occurrence: US)
  Receive Date: 20180105
  Receipt Date: 20200929
  Transmission Date: 20201102
  Serious: No
  Sender: FDA-Public Use
  Company Number: US-SA-2017SA234128

PATIENT

DRUGS (3)
  1. DUPIXENT [Suspect]
     Active Substance: DUPILUMAB
     Dosage: UNK
     Dates: start: 201808
  2. DUPIXENT [Suspect]
     Active Substance: DUPILUMAB
     Dosage: 300 MG, QOW
     Route: 058
     Dates: start: 20200131
  3. DUPIXENT [Suspect]
     Active Substance: DUPILUMAB
     Indication: DERMATITIS ATOPIC
     Dosage: 300 MG,QOW
     Route: 058
     Dates: start: 20170602

REACTIONS (7)
  - Influenza like illness [Unknown]
  - Oral pain [Unknown]
  - Dermatitis [Unknown]
  - Feeling hot [Unknown]
  - Eczema [Unknown]
  - Lip swelling [Unknown]
  - Stress [Unknown]

NARRATIVE: CASE EVENT DATE: 20170602
